FAERS Safety Report 12997947 (Version 1)
Quarter: 2016Q4

REPORT INFORMATION
  Report Type: Spontaneous
  Country: US (occurrence: US)
  Receive Date: 20161205
  Receipt Date: 20161205
  Transmission Date: 20170207
  Serious: No
  Sender: FDA-Public Use
  Company Number: None

PATIENT

DRUGS (2)
  1. DOBUTAMINE HCL [Suspect]
     Active Substance: DOBUTAMINE HYDROCHLORIDE
     Dosage: DOBUTAMINE HCL - STRENGTH 1000 MGC PER 250 ML TYPE IV BAG - DOSAGE FORM - INJECTABLE - IV
     Route: 042
  2. DOBUTAMINE HCL [Suspect]
     Active Substance: DOBUTAMINE HYDROCHLORIDE
     Dosage: DOBUTAMINE HCL - STRENGTH 1000 MCG/ML - DOSAGE FORM - INJECTABLE - IV - TYPE IV BAG - SIZE 250 ML
     Route: 042

REACTIONS (1)
  - Product label confusion [None]
